FAERS Safety Report 15689981 (Version 7)
Quarter: 2019Q3

REPORT INFORMATION
  Report Type: Spontaneous
  Country: NZ (occurrence: NZ)
  Receive Date: 20181205
  Receipt Date: 20190709
  Transmission Date: 20191004
  Serious: Yes (Life-Threatening, Hospitalization, Other)
  Sender: FDA-Public Use
  Company Number: NZ-PFIZER INC-2018492559

PATIENT
  Age: 25 Year
  Sex: Male

DRUGS (4)
  1. CLOBAZAM. [Concomitant]
     Active Substance: CLOBAZAM
     Dosage: UNK
  2. DILANTIN [Suspect]
     Active Substance: PHENYTOIN
     Indication: SEIZURE
     Dosage: 600 MG, 1X/DAY (AT NIGHT)
     Dates: start: 2015
  3. DILANTIN [Suspect]
     Active Substance: PHENYTOIN
     Dosage: 330 MG, 2X/DAY
  4. EPILIM [Concomitant]
     Active Substance: VALPROATE SODIUM
     Dosage: UNK

REACTIONS (18)
  - Apparent death [Unknown]
  - Toxicity to various agents [Unknown]
  - Abnormal behaviour [Unknown]
  - Lower respiratory tract infection [Unknown]
  - Vomiting [Unknown]
  - Suicidal ideation [Unknown]
  - Gait disturbance [Unknown]
  - Disease recurrence [Not Recovered/Not Resolved]
  - Cerebral palsy [Not Recovered/Not Resolved]
  - Drug level decreased [Unknown]
  - Dysstasia [Unknown]
  - Seizure [Not Recovered/Not Resolved]
  - Condition aggravated [Not Recovered/Not Resolved]
  - Arrhythmia [Unknown]
  - Hypotension [Unknown]
  - Depression [Unknown]
  - Feeling abnormal [Unknown]
  - Speech disorder [Unknown]

NARRATIVE: CASE EVENT DATE: 20181121
